FAERS Safety Report 24415827 (Version 1)
Quarter: 2024Q4

REPORT INFORMATION
  Report Type: Spontaneous
  Country: US (occurrence: None)
  Receive Date: 20241008
  Receipt Date: 20241008
  Transmission Date: 20250115
  Serious: Yes (Death)
  Sender: Public
  Company Number: None

PATIENT
  Age: 67 Year
  Sex: Female
  Weight: 50.8 kg

DRUGS (11)
  1. DUPIXENT [Suspect]
     Active Substance: DUPILUMAB
     Indication: Asthma
     Dosage: FREQUENCY : EVERY OTHER WEEK;?
     Route: 058
     Dates: start: 20240321, end: 20240927
  2. JARDIANCE [Concomitant]
     Active Substance: EMPAGLIFLOZIN
  3. LATANOPROST [Concomitant]
     Active Substance: LATANOPROST
  4. LEVOTHYROXINE [Concomitant]
     Active Substance: LEVOTHYROXINE
  5. ROPINIROLE [Concomitant]
     Active Substance: ROPINIROLE
  6. SEROQUEL [Concomitant]
     Active Substance: QUETIAPINE FUMARATE
  7. SINGULAIR [Concomitant]
     Active Substance: MONTELUKAST SODIUM
  8. METHOCARBAMOL [Concomitant]
     Active Substance: METHOCARBAMOL
  9. LOSARTAN [Concomitant]
     Active Substance: LOSARTAN
  10. DIAZEPAM [Concomitant]
     Active Substance: DIAZEPAM
  11. BREO ELLIPTA [Concomitant]
     Active Substance: FLUTICASONE FUROATE\VILANTEROL TRIFENATATE

REACTIONS (1)
  - Death [None]

NARRATIVE: CASE EVENT DATE: 20240927
